FAERS Safety Report 15189592 (Version 1)
Quarter: 2018Q3

REPORT INFORMATION
  Report Type: Spontaneous
  Country: US (occurrence: US)
  Receive Date: 20180724
  Receipt Date: 20180724
  Transmission Date: 20181010
  Serious: No
  Sender: FDA-Public Use
  Company Number: US-ASTRAZENECA-2018SE83561

PATIENT
  Age: 79 Year
  Sex: Female

DRUGS (1)
  1. SYMBICORT [Suspect]
     Active Substance: BUDESONIDE\FORMOTEROL FUMARATE DIHYDRATE
     Route: 055

REACTIONS (7)
  - Dyspepsia [Unknown]
  - Muscle spasms [Unknown]
  - Dyspnoea [Unknown]
  - Hypertension [Unknown]
  - Gait disturbance [Unknown]
  - Nervousness [Unknown]
  - Nasopharyngitis [Unknown]
